FAERS Safety Report 5915448-3 (Version None)
Quarter: 2008Q4

REPORT INFORMATION
  Report Type: 
  Country: None (occurrence: None)
  Receive Date: 20081009
  Receipt Date: 20081009
  Transmission Date: 20090506
  Serious: Yes (Other)
  Sender: FDA-Public Use
  Company Number: None

PATIENT
  Age: 25 Year
  Sex: Female
  Weight: 70.3075 kg

DRUGS (1)
  1. LAMOTRIGINE [Suspect]
     Indication: AFFECTIVE DISORDER
     Dosage: 1 TABLET TWICE DAILY PO
     Route: 048
     Dates: start: 20080628, end: 20080919

REACTIONS (6)
  - AMENORRHOEA [None]
  - DRUG INEFFECTIVE [None]
  - FEELING ABNORMAL [None]
  - MENSTRUATION IRREGULAR [None]
  - MENTAL DISORDER [None]
  - PRODUCT QUALITY ISSUE [None]
